FAERS Safety Report 13598332 (Version 1)
Quarter: 2017Q2

REPORT INFORMATION
  Report Type: Report from Study
  Country: US (occurrence: US)
  Receive Date: 20170531
  Receipt Date: 20170531
  Transmission Date: 20170830
  Serious: Yes (Life-Threatening)
  Sender: FDA-Public Use
  Company Number: US-BAYER-2017-098839

PATIENT
  Age: 14 Year
  Sex: Female

DRUGS (7)
  1. CITALOPRAM [Suspect]
     Active Substance: CITALOPRAM HYDROBROMIDE
     Dosage: UNK
  2. LOPERAMIDE [Suspect]
     Active Substance: LOPERAMIDE
     Dosage: UNK
  3. BAYER ASPIRIN [Suspect]
     Active Substance: ASPIRIN
     Dosage: UNK
  4. MELATONIN [Suspect]
     Active Substance: MELATONIN
     Dosage: UNK
  5. PHENYLEPHRIN [Suspect]
     Active Substance: PHENYLEPHRINE HYDROCHLORIDE
     Dosage: UNK
  6. CHLORPHENAMINE [Suspect]
     Active Substance: CHLORPHENIRAMINE MALEATE
     Dosage: UNK
  7. METHSCOPOLAMINE BROMIDE. [Suspect]
     Active Substance: METHSCOPOLAMINE BROMIDE
     Dosage: UNK

REACTIONS (5)
  - Suicide attempt [None]
  - Tachycardia [None]
  - Seizure [None]
  - Vomiting [None]
  - Diarrhoea [None]
